FAERS Safety Report 9370090 (Version 3)
Quarter: 2014Q3

REPORT INFORMATION
  Report Type: Spontaneous
  Country: CA (occurrence: CA)
  Receive Date: 20130626
  Receipt Date: 20140804
  Transmission Date: 20150326
  Serious: Yes (Other)
  Sender: FDA-Public Use
  Company Number: CA-ROCHE-1240332

PATIENT
  Age: 40 Year
  Sex: Female

DRUGS (9)
  1. XOLAIR [Suspect]
     Active Substance: OMALIZUMAB
     Indication: ASTHMA
     Dosage: REGIMEN 1
     Route: 058
     Dates: start: 20100428
  2. XOLAIR [Suspect]
     Active Substance: OMALIZUMAB
     Dosage: REGIMEN 4
     Route: 058
     Dates: start: 20130523
  3. XOLAIR [Suspect]
     Active Substance: OMALIZUMAB
     Dosage: REGIMEN 3
     Route: 058
     Dates: start: 20110427, end: 20110427
  4. XOLAIR [Suspect]
     Active Substance: OMALIZUMAB
     Route: 058
     Dates: start: 20140506
  5. RHINARIS (CANADA) [Concomitant]
  6. SINGULAIR [Concomitant]
     Active Substance: MONTELUKAST SODIUM
  7. SPIRIVA [Concomitant]
     Active Substance: TIOTROPIUM BROMIDE MONOHYDRATE
  8. SYMBICORT [Concomitant]
     Active Substance: BUDESONIDE\FORMOTEROL FUMARATE DIHYDRATE
  9. XOLAIR [Suspect]
     Active Substance: OMALIZUMAB
     Dosage: REGIMEN 2
     Route: 058
     Dates: start: 20110126

REACTIONS (9)
  - Arthritis [Unknown]
  - Wheezing [Unknown]
  - Respiratory disorder [Unknown]
  - Weight decreased [Unknown]
  - Drug ineffective [Unknown]
  - Sciatica [Unknown]
  - Lower respiratory tract infection [Unknown]
  - Seasonal allergy [Unknown]
  - Cough [Unknown]

NARRATIVE: CASE EVENT DATE: 20130523
